FAERS Safety Report 19769752 (Version 2)
Quarter: 2021Q3

REPORT INFORMATION
  Report Type: Spontaneous
  Country: US (occurrence: US)
  Receive Date: 20210831
  Receipt Date: 20210922
  Transmission Date: 20211014
  Serious: Yes (Other)
  Sender: FDA-Public Use
  Company Number: US-DRREDDYS-SPO/USA/21/0139475

PATIENT
  Age: 16 Year
  Sex: Male
  Weight: 68 kg

DRUGS (3)
  1. ISOTRETINOIN NOT OTHERWISE SPECIFIED [Suspect]
     Active Substance: ISOTRETINOIN
     Dosage: 1 MG/KG/DAY
     Dates: end: 2020
  2. ISOTRETINOIN NOT OTHERWISE SPECIFIED [Suspect]
     Active Substance: ISOTRETINOIN
     Dosage: 1 MG/KG/DAY
     Dates: end: 2020
  3. ISOTRETINOIN NOT OTHERWISE SPECIFIED [Suspect]
     Active Substance: ISOTRETINOIN
     Indication: ACNE
     Dosage: (0.44 MG/KG/DAY)
     Dates: start: 2019, end: 2020

REACTIONS (3)
  - Blood creatine phosphokinase increased [Unknown]
  - Rhabdomyolysis [Recovered/Resolved]
  - Neutropenia [Unknown]

NARRATIVE: CASE EVENT DATE: 2020
